FAERS Safety Report 14712601 (Version 3)
Quarter: 2018Q2

REPORT INFORMATION
  Report Type: Report from Study
  Country: None (occurrence: US)
  Receive Date: 20180404
  Receipt Date: 20180411
  Transmission Date: 20180711
  Serious: Yes (Hospitalization, Other)
  Sender: FDA-Public Use
  Company Number: US-ABBVIE-18K-163-2307874-00

PATIENT
  Age: 56 Year
  Sex: Male
  Weight: 113.05 kg

DRUGS (1)
  1. HUMIRA [Suspect]
     Active Substance: ADALIMUMAB
     Indication: PSORIASIS
     Route: 058
     Dates: start: 2016

REACTIONS (2)
  - Peripheral artery occlusion [Recovered/Resolved]
  - Poor peripheral circulation [Unknown]

NARRATIVE: CASE EVENT DATE: 2018
